FAERS Safety Report 9440552 (Version 1)
Quarter: 2013Q3

REPORT INFORMATION
  Report Type: Spontaneous
  Country: KR (occurrence: KR)
  Receive Date: 20130805
  Receipt Date: 20130805
  Transmission Date: 20140515
  Serious: Yes (Hospitalization)
  Sender: FDA-Public Use
  Company Number: KR-PFIZER INC-2013223780

PATIENT
  Age: 72 Year
  Sex: Male

DRUGS (6)
  1. OXALIPLATIN [Suspect]
     Indication: GASTRIC CANCER
     Dosage: 85 MG/M2, DAY 1
     Route: 042
  2. OXALIPLATIN [Suspect]
     Indication: CHEMOTHERAPY
  3. FLUOROURACIL [Concomitant]
     Indication: GASTRIC CANCER
     Dosage: 400 MG/M2, DAY 1
     Route: 040
  4. FLUOROURACIL [Concomitant]
     Indication: CHEMOTHERAPY
     Dosage: 1500 MG/M2, 22H CONTINUOUS INFUSION DAY 1, 2
  5. LEUCOVORIN [Concomitant]
     Indication: GASTRIC CANCER
     Dosage: 75 MG/M2, 22 H, CONTINUOUS INFUSION DAY 1, 2, EVERY TWO WEEKS
  6. LEUCOVORIN [Concomitant]
     Indication: CHEMOTHERAPY

REACTIONS (2)
  - Torsade de pointes [Recovered/Resolved]
  - Long QT syndrome [Recovered/Resolved]
